FAERS Safety Report 7741860-6 (Version None)
Quarter: 2011Q3

REPORT INFORMATION
  Report Type: 
  Country: None (occurrence: None)
  Receive Date: 20110912
  Receipt Date: 20110830
  Transmission Date: 20111222
  Serious: Yes (Hospitalization)
  Sender: FDA-Public Use
  Company Number: CH-JNJFOC-20110900287

PATIENT
  Sex: Male

DRUGS (2)
  1. METHOTREXATE [Concomitant]
  2. SIMPONI [Suspect]
     Indication: RHEUMATOID ARTHRITIS
     Route: 058
     Dates: start: 20110101

REACTIONS (2)
  - STAPHYLOCOCCAL INFECTION [None]
  - CAMPYLOBACTER INFECTION [None]
